FAERS Safety Report 6502237-4 (Version None)
Quarter: 2009Q4

REPORT INFORMATION
  Report Type: 
  Country: None (occurrence: None)
  Receive Date: 20091214
  Receipt Date: 20091209
  Transmission Date: 20100525
  Serious: Yes (Hospitalization)
  Sender: FDA-Public Use
  Company Number: CQT2-2008-00020

PATIENT
  Age: 76 Year
  Sex: Female
  Weight: 70 kg

DRUGS (9)
  1. HYDROXYUREA [Suspect]
     Indication: ESSENTIAL THROMBOCYTHAEMIA
     Dosage: 500 MG, 1 OR 3 CAPSULES PER DAY - AS REQUIRED, ORAL
     Route: 048
     Dates: start: 20021217, end: 20050207
  2. HYDROXYUREA [Suspect]
     Indication: ESSENTIAL THROMBOCYTHAEMIA
     Dosage: 500 MG, 1 OR 3 CAPSULES PER DAY - AS REQUIRED, ORAL
     Route: 048
     Dates: start: 20050503, end: 20071028
  3. HYDROXYUREA [Suspect]
     Indication: ESSENTIAL THROMBOCYTHAEMIA
     Dosage: 500 MG, 1 OR 3 CAPSULES PER DAY - AS REQUIRED, ORAL
     Route: 048
     Dates: start: 20080228
  4. 422   (ANAGRELIDE) CAPSULE [Suspect]
     Dosage: 0.5 MG, 1 OR 3 CAPSULES PER DAY - AS REQUIRED, ORAL : 0.5 MG, 1 OR 6 CAPSULES PER DAY - AS REQUIRED,
     Route: 048
     Dates: start: 20050208, end: 20050502
  5. 422   (ANAGRELIDE) CAPSULE [Suspect]
     Dosage: 0.5 MG, 1 OR 3 CAPSULES PER DAY - AS REQUIRED, ORAL : 0.5 MG, 1 OR 6 CAPSULES PER DAY - AS REQUIRED,
     Route: 048
     Dates: start: 20071029, end: 20080227
  6. ACETYLSALICYLIC ACID [Suspect]
     Indication: ESSENTIAL THROMBOCYTHAEMIA
     Dosage: 100 MG, 1X/DAY:QD,ORAL
     Route: 048
     Dates: start: 20020405, end: 20030114
  7. XIPAMID (XIPAMIDE) [Concomitant]
  8. BISPROLOL [Concomitant]
  9. OMEP (OMEPRAZOLE) [Concomitant]

REACTIONS (3)
  - ANAEMIA [None]
  - BASAL CELL CARCINOMA [None]
  - DRUG INTOLERANCE [None]
